FAERS Safety Report 6155645-8 (Version None)
Quarter: 2009Q2

REPORT INFORMATION
  Report Type: 
  Country: None (occurrence: None)
  Receive Date: 20090415
  Receipt Date: 20090403
  Transmission Date: 20091009
  Serious: Yes (Hospitalization)
  Sender: FDA-Public Use
  Company Number: CN-BRISTOL-MYERS SQUIBB COMPANY-14582399

PATIENT
  Age: 29 Year
  Sex: Female

DRUGS (4)
  1. ABILIFY [Suspect]
     Indication: MAJOR DEPRESSION
     Route: 048
  2. LITHIUM CARBONATE [Concomitant]
  3. LAMOTRIGINE [Concomitant]
  4. HALOPERIDOL DECANOATE [Concomitant]

REACTIONS (1)
  - HYPOMANIA [None]
